FAERS Safety Report 6506269-1 (Version None)
Quarter: 2009Q4

REPORT INFORMATION
  Report Type: 
  Country: None (occurrence: None)
  Receive Date: 20091216
  Receipt Date: 20091202
  Transmission Date: 20100525
  Serious: Yes (Other)
  Sender: FDA-Public Use
  Company Number: 002942

PATIENT
  Age: 12 Year

DRUGS (1)
  1. KEPPRA [Suspect]
     Dosage: (ORAL)
     Route: 048

REACTIONS (2)
  - BLINDNESS [None]
  - VISUAL IMPAIRMENT [None]
